FAERS Safety Report 9220430 (Version 1)
Quarter: 2013Q2

REPORT INFORMATION
  Report Type: Report from Study
  Country: US (occurrence: US)
  Receive Date: 20130409
  Receipt Date: 20130409
  Transmission Date: 20140414
  Serious: Yes (Other)
  Sender: FDA-Public Use
  Company Number: US-BAXTER-2013BAX013382

PATIENT
  Sex: Female

DRUGS (6)
  1. CYTOXAN [Suspect]
     Indication: LYMPHOMA
     Route: 065
  2. VINCRISTINE [Suspect]
     Indication: LYMPHOMA
     Route: 065
  3. DOXORUBICIN [Suspect]
     Indication: LYMPHOMA
     Route: 065
  4. CYTARABINE [Suspect]
     Indication: LYMPHOMA
     Route: 065
  5. DEXAMETHASONE [Suspect]
     Indication: LYMPHOMA
     Route: 065
  6. METHOTREXATE [Suspect]
     Indication: LYMPHOMA
     Route: 065

REACTIONS (2)
  - Exposure during pregnancy [Recovered/Resolved]
  - No adverse event [Recovered/Resolved]
